FAERS Safety Report 22012816 (Version 3)
Quarter: 2023Q2

REPORT INFORMATION
  Report Type: Spontaneous
  Country: US (occurrence: US)
  Receive Date: 20230220
  Receipt Date: 20230419
  Transmission Date: 20230722
  Serious: No
  Sender: FDA-Public Use
  Company Number: US-BRISTOL-MYERS SQUIBB COMPANY-2023-024694

PATIENT
  Age: 47 Year
  Sex: Female

DRUGS (2)
  1. ZEPOSIA [Suspect]
     Active Substance: OZANIMOD HYDROCHLORIDE
     Indication: Multiple sclerosis
     Route: 048
     Dates: start: 20221222
  2. ZEPOSIA [Suspect]
     Active Substance: OZANIMOD HYDROCHLORIDE
     Dates: start: 202302, end: 20230412

REACTIONS (4)
  - Peripheral swelling [Unknown]
  - Gait disturbance [Unknown]
  - Fall [Unknown]
  - Headache [Unknown]

NARRATIVE: CASE EVENT DATE: 20230104
